FAERS Safety Report 22988532 (Version 8)
Quarter: 2023Q4

REPORT INFORMATION
  Report Type: Spontaneous
  Country: US (occurrence: US)
  Receive Date: 20230926
  Receipt Date: 20231109
  Transmission Date: 20240110
  Serious: No
  Sender: FDA-Public Use
  Company Number: US-ELI_LILLY_AND_COMPANY-US202309012335

PATIENT
  Age: 16 Year
  Sex: Male

DRUGS (13)
  1. BASAGLAR [Suspect]
     Active Substance: INSULIN GLARGINE
     Indication: Diabetes mellitus
     Dosage: 40 U, EACH EVENING
     Route: 058
     Dates: start: 20230916
  2. BASAGLAR [Suspect]
     Active Substance: INSULIN GLARGINE
     Dosage: 32 U, EACH EVENING
     Route: 058
     Dates: start: 20230922
  3. BASAGLAR [Suspect]
     Active Substance: INSULIN GLARGINE
     Dosage: 26 U, EACH MORNING
     Route: 058
     Dates: start: 20230926
  4. BASAGLAR [Suspect]
     Active Substance: INSULIN GLARGINE
     Dosage: 24 U, EACH MORNING
     Route: 058
     Dates: start: 20230928
  5. BASAGLAR [Suspect]
     Active Substance: INSULIN GLARGINE
     Dosage: 20 U, EACH MORNING
     Route: 058
     Dates: start: 20230929
  6. BASAGLAR [Suspect]
     Active Substance: INSULIN GLARGINE
     Dosage: 16 U, EACH MORNING
     Route: 058
     Dates: start: 20231003
  7. BASAGLAR [Suspect]
     Active Substance: INSULIN GLARGINE
     Dosage: 14 U, EACH MORNING
  8. BASAGLAR [Suspect]
     Active Substance: INSULIN GLARGINE
     Dosage: 8 U, UNKNOWN
     Route: 065
  9. NOVOLOG [Suspect]
     Active Substance: INSULIN ASPART
     Indication: Diabetes mellitus
     Dosage: AT MEAL TIME BASED ON BLOOD GLUCOSE LEVEL AND CARB COUNT
     Route: 065
     Dates: start: 20230916
  10. NOVOLOG [Suspect]
     Active Substance: INSULIN ASPART
     Dosage: 1:7 CARB RATIO AT MEALTIME
     Route: 065
     Dates: start: 20230922
  11. NOVOLOG [Suspect]
     Active Substance: INSULIN ASPART
     Dosage: UNK UNK, OTHER (1:10 CARB RATIO AT MEALTIME/SNACKS)
     Route: 065
     Dates: start: 20230925
  12. NOVOLOG [Suspect]
     Active Substance: INSULIN ASPART
     Dosage: UNK UNK, OTHER (1:15 CARB RATIO)
     Route: 065
     Dates: start: 20230929
  13. NOVOLOG [Suspect]
     Active Substance: INSULIN ASPART
     Dosage: UNK UNK, OTHER (1:25 CARB RATIO)
     Route: 065

REACTIONS (6)
  - Tremor [Recovered/Resolved]
  - Blood glucose increased [Recovered/Resolved]
  - Sleep disorder due to general medical condition, insomnia type [Recovered/Resolved]
  - Fatigue [Recovered/Resolved]
  - Gastroenteritis viral [Recovered/Resolved]
  - Blood glucose decreased [Recovered/Resolved]

NARRATIVE: CASE EVENT DATE: 20230921
